FAERS Safety Report 21211823 (Version 1)
Quarter: 2022Q3

REPORT INFORMATION
  Report Type: Spontaneous
  Country: JP (occurrence: JP)
  Receive Date: 20220815
  Receipt Date: 20220815
  Transmission Date: 20221027
  Serious: Yes (Hospitalization, Other)
  Sender: FDA-Public Use
  Company Number: JP-PFIZER INC-PV202200037669

PATIENT
  Age: 76 Year
  Sex: Female
  Weight: 62.6 kg

DRUGS (2)
  1. LEVOFLOXACIN [Suspect]
     Active Substance: LEVOFLOXACIN
     Indication: Diverticulitis
     Dosage: 250 MG, 1X/DAY (FOR TWO DAYS)
     Route: 048
  2. CEFMETAZOLE [Suspect]
     Active Substance: CEFMETAZOLE
     Indication: Diverticulitis
     Dosage: 2 G, 3X/DAY (EVERY 8 HOURS)
     Route: 042

REACTIONS (1)
  - Hypoprothrombinaemia [Recovering/Resolving]
